FAERS Safety Report 11722326 (Version 1)
Quarter: 2015Q4

REPORT INFORMATION
  Report Type: Spontaneous
  Country: US (occurrence: US)
  Receive Date: 20151111
  Receipt Date: 20151111
  Transmission Date: 20160304
  Serious: No
  Sender: FDA-Public Use
  Company Number: PHEH2015US023179

PATIENT
  Age: 57 Year
  Sex: Male

DRUGS (1)
  1. TAFINLAR [Suspect]
     Active Substance: DABRAFENIB MESYLATE
     Indication: MALIGNANT MELANOMA
     Dosage: 2 DF, BID (ON EMPTY STOMACH 1 HR BEFORE AND 2 HRS AFTER MEAL)
     Route: 048
     Dates: start: 20151030

REACTIONS (5)
  - Pain [Unknown]
  - Pyrexia [Recovered/Resolved]
  - Thirst [Unknown]
  - Blood glucose decreased [Unknown]
  - Influenza like illness [Unknown]
